FAERS Safety Report 8127103-2 (Version None)
Quarter: 2011Q4

REPORT INFORMATION
  Report Type: 
  Country: None (occurrence: None)
  Receive Date: 20111227
  Receipt Date: 20110909
  Transmission Date: 20120403
  Serious: No
  Sender: FDA-Public Use
  Company Number: PHHY2011US11924

PATIENT
  Age: 42 Year
  Sex: Female

DRUGS (2)
  1. GILENYA [Suspect]
     Indication: MULTIPLE SCLEROSIS
     Dosage: 0.5 MG, DAILY; 0.5 MG, QD, ORAL
     Route: 048
     Dates: start: 20110128, end: 20110211
  2. GILENYA [Suspect]
     Indication: MULTIPLE SCLEROSIS
     Dosage: 0.5 MG, DAILY; 0.5 MG, QD, ORAL
     Route: 048
     Dates: start: 20110208

REACTIONS (3)
  - VISION BLURRED [None]
  - FATIGUE [None]
  - PAIN [None]
